FAERS Safety Report 7478522-9 (Version None)
Quarter: 2011Q2

REPORT INFORMATION
  Report Type: 
  Country: None (occurrence: None)
  Receive Date: 20110506
  Receipt Date: 20110421
  Transmission Date: 20111010
  Serious: Yes (Hospitalization, Other)
  Sender: FDA-Public Use
  Company Number: JPI-P-014570

PATIENT
  Age: 44 Year
  Sex: Female
  Weight: 56.246 kg

DRUGS (6)
  1. FLUOXETINE [Suspect]
     Indication: CATAPLEXY
     Dosage: 20 MG
     Dates: start: 20060101
  2. MORPHINE SULFATE [Concomitant]
  3. XYREM [Suspect]
     Indication: CATAPLEXY
     Dosage: (3-3.75 GM TWICE NIGHTLY), ORAL 9 GM (4.5 GM, 2 IN 1 D), ORAL 4.5 GM (4.5 GM, 1 IN 1 D), ORAL
     Route: 048
     Dates: start: 20110410, end: 20110411
  4. XYREM [Suspect]
     Indication: CATAPLEXY
     Dosage: (3-3.75 GM TWICE NIGHTLY), ORAL 9 GM (4.5 GM, 2 IN 1 D), ORAL 4.5 GM (4.5 GM, 1 IN 1 D), ORAL
     Route: 048
     Dates: end: 20110403
  5. XYREM [Suspect]
     Indication: CATAPLEXY
     Dosage: (3-3.75 GM TWICE NIGHTLY), ORAL 9 GM (4.5 GM, 2 IN 1 D), ORAL 4.5 GM (4.5 GM, 1 IN 1 D), ORAL
     Route: 048
     Dates: start: 20110405, end: 20110407
  6. XYREM [Suspect]
     Indication: CATAPLEXY
     Dosage: (3-3.75 GM TWICE NIGHTLY), ORAL 9 GM (4.5 GM, 2 IN 1 D), ORAL 4.5 GM (4.5 GM, 1 IN 1 D), ORAL
     Route: 048
     Dates: start: 20100526

REACTIONS (6)
  - LOSS OF CONSCIOUSNESS [None]
  - ELECTROCARDIOGRAM QT PROLONGED [None]
  - MENOPAUSE [None]
  - ARRHYTHMIA [None]
  - HEAD INJURY [None]
  - DISSOCIATION [None]
